FAERS Safety Report 8607597-6 (Version None)
Quarter: 2012Q3

REPORT INFORMATION
  Report Type: 
  Country: None (occurrence: None)
  Receive Date: 20120821
  Receipt Date: 20120807
  Transmission Date: 20120928
  Serious: Yes (Other)
  Sender: FDA-Public Use
  Company Number: GB-MYLANLABS-2012S1016219

PATIENT
  Age: 79 Year
  Sex: Male

DRUGS (2)
  1. BACLOFEN [Suspect]
     Indication: MUSCLE SPASMS
     Route: 048
     Dates: start: 20120731
  2. FINASTERIDE [Concomitant]
     Indication: PROSTATE CANCER
     Route: 048

REACTIONS (4)
  - POSTURE ABNORMAL [None]
  - PALPITATIONS [None]
  - SOMNOLENCE [None]
  - DIZZINESS [None]
